FAERS Safety Report 5715893-5 (Version None)
Quarter: 2008Q2

REPORT INFORMATION
  Report Type: 
  Country: None (occurrence: None)
  Receive Date: 20080424
  Receipt Date: 20080415
  Transmission Date: 20081010
  Serious: Yes (Hospitalization)
  Sender: FDA-Public Use
  Company Number: GB-TEVA-170238ISR

PATIENT
  Age: 52 Year
  Sex: Female

DRUGS (1)
  1. METHOTREXATE [Suspect]
     Indication: PSORIATIC ARTHROPATHY

REACTIONS (3)
  - BILE DUCT CANCER [None]
  - PARATHYROID TUMOUR BENIGN [None]
  - RENAL CELL CARCINOMA STAGE I [None]
